FAERS Safety Report 8609285-9 (Version None)
Quarter: 2012Q3

REPORT INFORMATION
  Report Type: 
  Country: None (occurrence: None)
  Receive Date: 20120821
  Receipt Date: 20120814
  Transmission Date: 20120928
  Serious: Yes (Other)
  Sender: FDA-Public Use
  Company Number: PHHY2012BR071506

PATIENT
  Sex: Female
  Weight: 64.8 kg

DRUGS (5)
  1. EXELON [Suspect]
     Indication: DEMENTIA ALZHEIMER'S TYPE
     Dosage: 4.6 MG/ 24 HRS
     Route: 062
     Dates: start: 20100601
  2. EXELON [Suspect]
     Dosage: 13.3 MG/ 24 HRS
     Route: 062
     Dates: start: 20120601
  3. EXELON [Suspect]
     Dosage: 4.6 MG/ 24 HRS
     Route: 062
     Dates: start: 20110301
  4. EXELON [Suspect]
     Dosage: 9.5 MG/ 24 HRS
     Route: 062
     Dates: start: 20110201
  5. EXELON [Suspect]
     Dosage: 9.5 MG/ 24 HRS
     Route: 062
     Dates: start: 20120501

REACTIONS (7)
  - AGGRESSION [None]
  - HYPERTENSION [None]
  - SELF INJURIOUS BEHAVIOUR [None]
  - AGITATION [None]
  - CRYING [None]
  - DELIRIUM [None]
  - SLEEP DISORDER [None]
